FAERS Safety Report 19007257 (Version 1)
Quarter: 2021Q1

REPORT INFORMATION
  Report Type: Spontaneous
  Country: US (occurrence: US)
  Receive Date: 20210315
  Receipt Date: 20210315
  Transmission Date: 20210420
  Serious: No
  Sender: FDA-Public Use
  Company Number: None

PATIENT
  Age: 41 Year
  Sex: Female

DRUGS (1)
  1. TECFIDERA [Suspect]
     Active Substance: DIMETHYL FUMARATE
     Indication: MULTIPLE SCLEROSIS
     Route: 048
     Dates: start: 20160217, end: 202102

REACTIONS (4)
  - Urticaria [None]
  - COVID-19 [None]
  - Swollen tongue [None]
  - Cellulitis [None]

NARRATIVE: CASE EVENT DATE: 202009
